FAERS Safety Report 5628012-0 (Version None)
Quarter: 2008Q1

REPORT INFORMATION
  Report Type: 
  Country: None (occurrence: None)
  Receive Date: 20080215
  Receipt Date: 20071227
  Transmission Date: 20080703
  Serious: Yes (Hospitalization)
  Sender: FDA-Public Use
  Company Number: JP-BRISTOL-MYERS SQUIBB COMPANY-14022958

PATIENT
  Sex: Male

DRUGS (3)
  1. TAXOL [Suspect]
     Indication: NON-SMALL CELL LUNG CANCER
     Route: 041
     Dates: end: 20071225
  2. PARAPLATIN [Suspect]
     Indication: NON-SMALL CELL LUNG CANCER
     Route: 041
     Dates: end: 20071225
  3. CEPHADOL [Concomitant]
     Route: 048
     Dates: start: 20071215, end: 20071217

REACTIONS (2)
  - DIZZINESS [None]
  - HYPOTENSION [None]
